FAERS Safety Report 26180900 (Version 1)
Quarter: 2025Q4

REPORT INFORMATION
  Report Type: Spontaneous
  Country: US (occurrence: US)
  Receive Date: 20251221
  Receipt Date: 20251221
  Transmission Date: 20260118
  Serious: Yes (Hospitalization, Other)
  Sender: GLAXOSMITHKLINE
  Company Number: US-GSK-US2025AMR159733

PATIENT
  Age: 87 Year
  Sex: Female

DRUGS (2)
  1. VALTREX [Suspect]
     Active Substance: VALACYCLOVIR HYDROCHLORIDE
     Indication: Herpes zoster
     Dosage: UNK
  2. DUPILUMAB [Suspect]
     Active Substance: DUPILUMAB
     Indication: Dermatitis atopic
     Dosage: 300 MG, WE

REACTIONS (7)
  - Acute kidney injury [Unknown]
  - Urinary tract infection [Not Recovered/Not Resolved]
  - Lichen planus [Unknown]
  - Herpes zoster [Not Recovered/Not Resolved]
  - Blood creatinine increased [Unknown]
  - Illness [Unknown]
  - Tooth extraction [Unknown]

NARRATIVE: CASE EVENT DATE: 20240501
